FAERS Safety Report 20770365 (Version 1)
Quarter: 2022Q2

REPORT INFORMATION
  Report Type: Spontaneous
  Country: US (occurrence: US)
  Receive Date: 20220429
  Receipt Date: 20220429
  Transmission Date: 20220721
  Serious: Yes (Other)
  Sender: FDA-Public Use
  Company Number: US-MYLANLABS-2022M1031579

PATIENT
  Age: 73 Year
  Sex: Male

DRUGS (2)
  1. PACLITAXEL [Suspect]
     Active Substance: PACLITAXEL
     Indication: Oesophageal adenocarcinoma
     Dosage: UNK, CYCLE (RECEIVED FIVE CYCLES OF WEEKLY PACLITAXEL)
     Route: 065
  2. CARBOPLATIN [Concomitant]
     Active Substance: CARBOPLATIN
     Indication: Oesophageal adenocarcinoma
     Dosage: UNK, CYCLE (RECEIVED FIVE CYCLES OF WEEKLY CARBOPLATIN)
     Route: 065

REACTIONS (3)
  - Acute myeloid leukaemia [Unknown]
  - Chloroma [Unknown]
  - Oesophageal carcinoma [Unknown]
